FAERS Safety Report 24543017 (Version 1)
Quarter: 2024Q4

REPORT INFORMATION
  Report Type: Spontaneous
  Country: GB (occurrence: GB)
  Receive Date: 20241024
  Receipt Date: 20241024
  Transmission Date: 20250114
  Serious: Yes (Other)
  Sender: AUROBINDO
  Company Number: GB-TILLOMEDPR-2024-EPL-005322

PATIENT
  Age: 48 Year
  Sex: Female

DRUGS (4)
  1. TAMOXIFEN [Suspect]
     Active Substance: TAMOXIFEN
     Indication: Breast cancer
     Dosage: 20 MILLIGRAM (20 MILLIGRAM, QD, TABLET, STARTED 1 YEAR AGO)
     Route: 065
  2. TAMOXIFEN [Suspect]
     Active Substance: TAMOXIFEN
     Indication: Mastectomy
  3. TAMOXIFEN [Suspect]
     Active Substance: TAMOXIFEN
     Indication: Hormone therapy
  4. RAMIPRIL [Suspect]
     Active Substance: RAMIPRIL
     Indication: Product used for unknown indication
     Dosage: 2.5 MILLIGRAM (2.5 MILLIGRAM AND HAVE DONE FOR 3 MONTHS)
     Route: 065

REACTIONS (5)
  - Breast haemorrhage [Unknown]
  - Breast pain [Unknown]
  - Restless legs syndrome [Unknown]
  - Insomnia [Unknown]
  - Drug ineffective [Unknown]
